FAERS Safety Report 7763389-1 (Version None)
Quarter: 2011Q3

REPORT INFORMATION
  Report Type: 
  Country: None (occurrence: None)
  Receive Date: 20110920
  Receipt Date: 20110913
  Transmission Date: 20111222
  Serious: Yes (Hospitalization, Other)
  Sender: FDA-Public Use
  Company Number: HR-ABBOTT-11P-216-0855239-00

PATIENT
  Age: 55 Year
  Sex: Female
  Weight: 85 kg

DRUGS (3)
  1. NEXIUM [Concomitant]
     Indication: ULCER
     Route: 048
     Dates: start: 20110110, end: 20110111
  2. BISOPROLOL FUMARATE [Concomitant]
     Indication: HYPERTENSION
     Route: 048
     Dates: start: 20110101
  3. FEVARIN [Suspect]
     Indication: PRODUCT USED FOR UNKNOWN INDICATION
     Route: 048
     Dates: start: 20090601

REACTIONS (3)
  - JAUNDICE [None]
  - HYPERTRANSAMINASAEMIA [None]
  - ACUTE HEPATIC FAILURE [None]
